FAERS Safety Report 9534933 (Version 1)
Quarter: 2013Q2

REPORT INFORMATION
  Report Type: Spontaneous
  Country: FR (occurrence: None)
  Receive Date: 20130403
  Receipt Date: 20130403
  Transmission Date: 20140414
  Serious: Yes (Other)
  Sender: FDA-Public Use
  Company Number: US-2012-10710

PATIENT
  Sex: 0

DRUGS (6)
  1. BUSULFEX (BUSULFAN) INJECTION [Suspect]
     Indication: BONE MARROW CONDITIONING REGIMEN
     Dosage: 2X1 MG/KG BODY WEIGHT, INTRAVENOUS
     Route: 042
  2. FLUDARABINE (FLUDARABINE PHOSPHATE) [Concomitant]
  3. ATG-FRESENIUS (ANTITHYMOCYTE IMMUNOGLOBULIN) [Concomitant]
  4. CYCLOSPORIN A [Concomitant]
  5. METHYLPREDNISOLONE [Concomitant]
  6. OKT-3 (MUROMONAB-CD3) [Concomitant]

REACTIONS (3)
  - Agranulocytosis [None]
  - Mucosal inflammation [None]
  - Viral infection [None]
